FAERS Safety Report 5186494-5 (Version None)
Quarter: 2006Q4

REPORT INFORMATION
  Report Type: 
  Country: None (occurrence: None)
  Receive Date: 20061213
  Receipt Date: 20061129
  Transmission Date: 20070319
  Serious: Yes (Disabling, Other)
  Sender: FDA-Public Use
  Company Number: A-CH2006-13726

PATIENT
  Age: 33 Year
  Sex: Female
  Weight: 51 kg

DRUGS (4)
  1. TRACLEER [Suspect]
     Indication: SCLERODERMA
     Dosage: 125 MG, BID, ORAL
     Route: 048
  2. LEVONORGESTREL [Suspect]
     Dosage: ORAL
     Route: 048
     Dates: end: 20060613
  3. OMEPRAZOLE [Suspect]
     Dosage: 20 MG, OD, ORAL
     Route: 048
     Dates: start: 20060613, end: 20061015
  4. ASPEGIC BABY (ACETYLSALICYLATE LYSINE, AMINOACETIC ACID) [Suspect]
     Dosage: 100 MG, OD, ORAL
     Route: 048
     Dates: start: 20060613, end: 20061015

REACTIONS (10)
  - CAESAREAN SECTION [None]
  - DRUG EFFECT DECREASED [None]
  - DRUG EXPOSURE DURING PREGNANCY [None]
  - DRUG INTERACTION [None]
  - FOETAL ARRHYTHMIA [None]
  - FOETAL GROWTH RETARDATION [None]
  - FOETAL MOVEMENTS DECREASED [None]
  - PREGNANCY ON ORAL CONTRACEPTIVE [None]
  - PREMATURE LABOUR [None]
  - UNINTENDED PREGNANCY [None]
